FAERS Safety Report 6868134-X (Version None)
Quarter: 2010Q3

REPORT INFORMATION
  Report Type: 
  Country: None (occurrence: None)
  Receive Date: 20100722
  Receipt Date: 20080514
  Transmission Date: 20110219
  Serious: No
  Sender: FDA-Public Use
  Company Number: US-PFIZER INC-2008042380

PATIENT
  Age: 35 Year
  Sex: Female

DRUGS (2)
  1. CHANTIX [Suspect]
     Indication: SMOKING CESSATION THERAPY
     Dates: start: 20080101, end: 20080101
  2. PROMETHAZINE [Suspect]
     Indication: NAUSEA
     Route: 048
     Dates: start: 20080101, end: 20080101

REACTIONS (2)
  - NAUSEA [None]
  - SOMNOLENCE [None]
